FAERS Safety Report 4359314-6 (Version None)
Quarter: 2004Q2

REPORT INFORMATION
  Report Type: 
  Country: None (occurrence: None)
  Receive Date: 20040512
  Receipt Date: 20040428
  Transmission Date: 20050107
  Serious: Yes (Other)
  Sender: FDA-Public Use
  Company Number: 040018

PATIENT
  Age: 47 Year
  Sex: Female

DRUGS (4)
  1. ORANGE FLAVOR NULYTELY [Suspect]
     Indication: COLONOSCOPY
     Dosage: 2 LITERS PO
     Route: 048
     Dates: start: 20040420
  2. CELEBREX [Concomitant]
  3. DOXEPIN HCL [Concomitant]
  4. SYNTHROID [Concomitant]

REACTIONS (1)
  - RASH [None]
